FAERS Safety Report 11100197 (Version 1)
Quarter: 2015Q2

REPORT INFORMATION
  Report Type: Spontaneous
  Country: US (occurrence: None)
  Receive Date: 20150507
  Receipt Date: 20150507
  Transmission Date: 20150821
  Serious: No
  Sender: FDA-Public Use
  Company Number: None

PATIENT
  Age: 21 Year
  Sex: Female
  Weight: 63.5 kg

DRUGS (2)
  1. NEXPLANON [Suspect]
     Active Substance: ETONOGESTREL
     Dates: start: 20141124
  2. XANAX [Concomitant]
     Active Substance: ALPRAZOLAM

REACTIONS (7)
  - Foreign body reaction [None]
  - Impaired healing [None]
  - Pain in extremity [None]
  - Scar [None]
  - Macrophages increased [None]
  - Implant site infection [None]
  - Muscular weakness [None]
